FAERS Safety Report 19901254 (Version 1)
Quarter: 2021Q3

REPORT INFORMATION
  Report Type: Spontaneous
  Country: US (occurrence: US)
  Receive Date: 20210929
  Receipt Date: 20210929
  Transmission Date: 20211014
  Serious: No
  Sender: FDA-Public Use
  Company Number: US-ALLERGAN-2116114US

PATIENT
  Sex: Female

DRUGS (2)
  1. BUTALBITAL;ASPIRIN;CAFFEINE UNK [Suspect]
     Active Substance: ASPIRIN\BUTALBITAL\CAFFEINE
     Indication: MIGRAINE
  2. BUTALBITAL;ASPIRIN;CAFFEINE UNK [Suspect]
     Active Substance: ASPIRIN\BUTALBITAL\CAFFEINE
     Indication: HEADACHE
     Dosage: UNK, PRN (3?4 TABS DAILY)
     Route: 048
     Dates: start: 1996

REACTIONS (1)
  - Pain [Recovered/Resolved]
